FAERS Safety Report 4468029-5 (Version None)
Quarter: 2004Q4

REPORT INFORMATION
  Report Type: 
  Country: None (occurrence: None)
  Receive Date: 20041007
  Receipt Date: 20040928
  Transmission Date: 20050328
  Serious: Yes (Life-Threatening, Hospitalization)
  Sender: FDA-Public Use
  Company Number: FR-BRISTOL-MYERS SQUIBB COMPANY-12720314

PATIENT
  Age: 64 Year
  Sex: Male

DRUGS (6)
  1. GLUCOPHAGE [Suspect]
     Indication: DIABETES MELLITUS NON-INSULIN-DEPENDENT
     Route: 048
     Dates: end: 20040919
  2. COVERSYL [Concomitant]
     Indication: HYPERTENSION
     Route: 048
  3. LODOZ [Concomitant]
     Indication: HYPERTENSION
     Route: 048
  4. ELISOR [Concomitant]
     Indication: DYSLIPIDAEMIA
     Route: 048
  5. MIRTAZAPINE [Concomitant]
     Indication: DEPRESSION
  6. LYSANXIA [Concomitant]
     Indication: DEPRESSION
     Route: 048

REACTIONS (6)
  - ACCIDENTAL OVERDOSE [None]
  - LACTIC ACIDOSIS [None]
  - MEDICATION ERROR [None]
  - MULTI-ORGAN FAILURE [None]
  - RENAL FAILURE ACUTE [None]
  - RESPIRATORY FAILURE [None]
